FAERS Safety Report 9112479 (Version 1)
Quarter: 2013Q1

REPORT INFORMATION
  Report Type: Spontaneous
  Country: PL (occurrence: PL)
  Receive Date: 20130212
  Receipt Date: 20130212
  Transmission Date: 20140127
  Serious: Yes (Other)
  Sender: FDA-Public Use
  Company Number: PL-AMGEN-POLSP2013009466

PATIENT
  Age: 47 Year
  Sex: Female

DRUGS (5)
  1. ENBREL [Suspect]
     Indication: PSORIASIS
     Dosage: UNK
  2. ENBREL [Suspect]
     Indication: PSORIATIC ARTHROPATHY
  3. METHOTREXATE SODIUM [Concomitant]
     Dosage: UNK
  4. INFLIXIMAB [Concomitant]
     Dosage: UNK
  5. ADALIMUMAB [Concomitant]
     Dosage: UNK

REACTIONS (6)
  - Photosensitivity reaction [Unknown]
  - Hepatic steatosis [Unknown]
  - Drug ineffective [Unknown]
  - Cutaneous lupus erythematosus [Unknown]
  - Antinuclear antibody positive [Unknown]
  - Anaemia [Unknown]
